FAERS Safety Report 13159873 (Version 1)
Quarter: 2017Q1

REPORT INFORMATION
  Report Type: Spontaneous
  Country: US (occurrence: US)
  Receive Date: 20170127
  Receipt Date: 20170127
  Transmission Date: 20170428
  Serious: No
  Sender: FDA-Public Use
  Company Number: US-BAUSCH-BL-2016-017947

PATIENT
  Sex: Female

DRUGS (2)
  1. ERTACZO [Suspect]
     Active Substance: SERTACONAZOLE NITRATE
     Indication: PRODUCT USED FOR UNKNOWN INDICATION
     Route: 061
  2. ERTACZO [Suspect]
     Active Substance: SERTACONAZOLE NITRATE
     Route: 061
     Dates: start: 201607

REACTIONS (1)
  - Off label use [Unknown]
